FAERS Safety Report 21009105 (Version 6)
Quarter: 2023Q2

REPORT INFORMATION
  Report Type: Report from Study
  Country: CA (occurrence: CA)
  Receive Date: 20220627
  Receipt Date: 20230602
  Transmission Date: 20230722
  Serious: Yes (Other)
  Sender: FDA-Public Use
  Company Number: CA-TAKEDA-2021TUS054048

PATIENT
  Age: 74 Year
  Sex: Female

DRUGS (9)
  1. VEDOLIZUMAB [Suspect]
     Active Substance: VEDOLIZUMAB
     Indication: Colitis ulcerative
     Dosage: 300 MILLIGRAM
     Route: 042
     Dates: start: 20210817
  2. VEDOLIZUMAB [Suspect]
     Active Substance: VEDOLIZUMAB
     Dosage: 300 MILLIGRAM
     Route: 042
  3. VEDOLIZUMAB [Suspect]
     Active Substance: VEDOLIZUMAB
     Dosage: 300 MILLIGRAM
     Route: 042
  4. VEDOLIZUMAB [Suspect]
     Active Substance: VEDOLIZUMAB
     Dosage: 300 MILLIGRAM, Q4WEEKS
     Route: 042
     Dates: start: 20220627
  5. VEDOLIZUMAB [Suspect]
     Active Substance: VEDOLIZUMAB
     Dosage: 300 MILLIGRAM, Q4WEEKS
     Route: 042
  6. VEDOLIZUMAB [Suspect]
     Active Substance: VEDOLIZUMAB
     Dosage: 300 MILLIGRAM, Q4WEEKS
     Route: 042
  7. VEDOLIZUMAB [Suspect]
     Active Substance: VEDOLIZUMAB
     Dosage: 300 MILLIGRAM, Q4WEEKS
     Route: 042
  8. PENTASA [Concomitant]
     Active Substance: MESALAMINE
     Dosage: UNK
     Dates: start: 201603
  9. PERINDOPRIL [Concomitant]
     Active Substance: PERINDOPRIL
     Dosage: 2 MILLIGRAM
     Dates: start: 20220310

REACTIONS (8)
  - Colitis ulcerative [Unknown]
  - Haematochezia [Recovered/Resolved]
  - Diarrhoea [Recovered/Resolved]
  - Hyperkeratosis [Unknown]
  - Off label use [Unknown]
  - COVID-19 [Recovered/Resolved]
  - Abdominal pain [Recovered/Resolved]
  - Food intolerance [Recovered/Resolved]

NARRATIVE: CASE EVENT DATE: 20210101
